FAERS Safety Report 8481619-8 (Version None)
Quarter: 2012Q3

REPORT INFORMATION
  Report Type: 
  Country: None (occurrence: None)
  Receive Date: 20120702
  Receipt Date: 20120625
  Transmission Date: 20120928
  Serious: Yes (Hospitalization)
  Sender: FDA-Public Use
  Company Number: US-B.I. PHARMACEUTICALS,INC./RIDGEFIELD-2012-BP-14443BP

PATIENT
  Sex: Female

DRUGS (9)
  1. DIGOXIN [Concomitant]
     Indication: ATRIAL FIBRILLATION
  2. GABAPENTIN [Concomitant]
  3. SIMVASTATIN [Concomitant]
     Indication: BLOOD CHOLESTEROL ABNORMAL
  4. METOPROLOL TARTRATE [Concomitant]
     Indication: DYSPEPSIA
  5. MULTI-VITAMIN [Concomitant]
  6. MULTIVITAMIN [Concomitant]
     Indication: EYE DISORDER
  7. PRADAXA [Suspect]
     Indication: CEREBROVASCULAR ACCIDENT
     Dosage: 300 MG
     Route: 048
     Dates: start: 20110101, end: 20120601
  8. ASACOL [Concomitant]
     Indication: COLITIS
  9. VITAMIN TAB [Concomitant]

REACTIONS (1)
  - LOWER GASTROINTESTINAL HAEMORRHAGE [None]
